FAERS Safety Report 9486517 (Version 4)
Quarter: 2020Q2

REPORT INFORMATION
  Report Type: Report from Study
  Country: US (occurrence: US)
  Receive Date: 20130829
  Receipt Date: 20200625
  Transmission Date: 20200714
  Serious: Yes (Other)
  Sender: FDA-Public Use
  Company Number: US-SANOFI-AVENTIS-2013SA048161

PATIENT
  Sex: Male
  Weight: 81.63 kg

DRUGS (1)
  1. TERIFLUNOMIDE. [Suspect]
     Active Substance: TERIFLUNOMIDE
     Indication: MULTIPLE SCLEROSIS
     Dosage: 14 MG,QD
     Route: 048
     Dates: start: 20130313

REACTIONS (5)
  - Diarrhoea [Not Recovered/Not Resolved]
  - Skin discolouration [Unknown]
  - Rash [Unknown]
  - Multiple sclerosis [Unknown]
  - Formication [Recovered/Resolved]

NARRATIVE: CASE EVENT DATE: 2013
